FAERS Safety Report 8119287-7 (Version None)
Quarter: 2012Q1

REPORT INFORMATION
  Report Type: 
  Country: None (occurrence: None)
  Receive Date: 20120207
  Receipt Date: 20120125
  Transmission Date: 20120608
  Serious: Yes (Hospitalization, Other)
  Sender: FDA-Public Use
  Company Number: US-ELI_LILLY_AND_COMPANY-US201201008168

PATIENT
  Sex: Male

DRUGS (5)
  1. ZYPREXA [Suspect]
     Indication: AGITATION
     Dosage: 10 MG, QD
  2. ASPIRIN [Concomitant]
  3. GLIMEPIRIDE [Concomitant]
  4. MULTI-VITAMIN [Concomitant]
  5. BENICAR [Concomitant]

REACTIONS (19)
  - LUNG INFILTRATION [None]
  - ATRIAL FIBRILLATION [None]
  - FLUID OVERLOAD [None]
  - FEELING COLD [None]
  - INFUSION SITE SWELLING [None]
  - OXYGEN SATURATION DECREASED [None]
  - TACHYCARDIA [None]
  - PNEUMONIA [None]
  - DEMENTIA [None]
  - THROMBOSIS [None]
  - DYSPNOEA [None]
  - CARDIAC FAILURE CONGESTIVE [None]
  - MUSCULAR WEAKNESS [None]
  - PAIN IN EXTREMITY [None]
  - OFF LABEL USE [None]
  - INFUSION SITE EXTRAVASATION [None]
  - HYPOTENSION [None]
  - TENDERNESS [None]
  - OEDEMA PERIPHERAL [None]
